FAERS Safety Report 10717590 (Version 1)
Quarter: 2015Q1

REPORT INFORMATION
  Report Type: Spontaneous
  Country: US (occurrence: US)
  Receive Date: 20150116
  Receipt Date: 20150116
  Transmission Date: 20150721
  Serious: Yes (Other)
  Sender: FDA-Public Use
  Company Number: US-BAUSCH-BL-2014-008894

PATIENT
  Sex: Female

DRUGS (1)
  1. FLUOROURACIL 5% [Suspect]
     Active Substance: FLUOROURACIL
     Indication: SKIN CANCER
     Route: 061
     Dates: start: 201402

REACTIONS (1)
  - Drug ineffective [Not Recovered/Not Resolved]

NARRATIVE: CASE EVENT DATE: 201402
